FAERS Safety Report 6189956-7 (Version None)
Quarter: 2009Q2

REPORT INFORMATION
  Report Type: 
  Country: None (occurrence: None)
  Receive Date: 20090514
  Receipt Date: 20090505
  Transmission Date: 20091009
  Serious: Yes (Hospitalization, Other)
  Sender: FDA-Public Use
  Company Number: PHHY2009GB13318

PATIENT
  Sex: Male

DRUGS (1)
  1. CLOZARIL [Suspect]
     Indication: SCHIZOPHRENIA
     Dosage: UNK
     Route: 048
     Dates: start: 20031104

REACTIONS (4)
  - DIABETIC COMPLICATION [None]
  - PLATELET COUNT DECREASED [None]
  - TOE AMPUTATION [None]
  - WOUND INFECTION [None]
